FAERS Safety Report 9779936 (Version 2)
Quarter: 2014Q1

REPORT INFORMATION
  Report Type: Spontaneous
  Country: US (occurrence: US)
  Receive Date: 20131223
  Receipt Date: 20140116
  Transmission Date: 20141002
  Serious: Yes (Other)
  Sender: FDA-Public Use
  Company Number: US-GLAXOSMITHKLINE-A1054493A

PATIENT
  Age: 48 Year
  Sex: Male
  Weight: 77.7 kg

DRUGS (2)
  1. BENLYSTA [Suspect]
     Indication: SYSTEMIC LUPUS ERYTHEMATOSUS
     Dosage: 10MGK MONTHLY
     Route: 042
     Dates: start: 20130729
  2. NONE [Concomitant]

REACTIONS (8)
  - Weight decreased [Recovering/Resolving]
  - Local swelling [Recovered/Resolved]
  - Surgery [Unknown]
  - Vena cava filter insertion [Recovered/Resolved]
  - Thrombectomy [Recovered/Resolved]
  - Thrombosis [Recovered/Resolved]
  - Abscess [Recovered/Resolved]
  - Infection [Recovered/Resolved]
